FAERS Safety Report 5087635-0 (Version None)
Quarter: 2006Q3

REPORT INFORMATION
  Report Type: 
  Country: None (occurrence: None)
  Receive Date: 20060824
  Receipt Date: 20060816
  Transmission Date: 20061208
  Serious: Yes (Death, Life-Threatening, Hospitalization, Other)
  Sender: FDA-Public Use
  Company Number: CA-JNJFOC-20060804023

PATIENT
  Sex: Male
  Weight: 56.4 kg

DRUGS (6)
  1. REMICADE [Suspect]
     Indication: RHEUMATOID ARTHRITIS
     Route: 042
  2. PREDNISONE [Concomitant]
     Indication: RHEUMATOID ARTHRITIS
     Dosage: 15-20 MG DAILY
     Route: 048
  3. CYCLOSPORINE [Concomitant]
     Indication: RHEUMATOID ARTHRITIS
     Route: 048
  4. ADALAT [Concomitant]
     Indication: HYPERTENSION
  5. ANDRIOL [Concomitant]
  6. CALCIUM WITH VITAMIN D [Concomitant]
     Indication: OSTEOPOROSIS

REACTIONS (2)
  - ACUTE CORONARY SYNDROME [None]
  - EMPYEMA [None]
